FAERS Safety Report 21274722 (Version 1)
Quarter: 2022Q3

REPORT INFORMATION
  Report Type: Spontaneous
  Country: US (occurrence: None)
  Receive Date: 20220831
  Receipt Date: 20220831
  Transmission Date: 20221027
  Serious: Yes (Disabling)
  Sender: FDA-Public Use
  Company Number: None

PATIENT
  Age: 77 Year
  Sex: Female
  Weight: 74.7 kg

DRUGS (20)
  1. EDARBI [Suspect]
     Active Substance: AZILSARTAN KAMEDOXOMIL
     Indication: Hypertension
     Dosage: OTHER QUANTITY : 1 TABLET(S);?FREQUENCY : DAILY;?
     Route: 048
     Dates: start: 20220820
  2. AMLODIPINE [Concomitant]
     Active Substance: AMLODIPINE BESYLATE
  3. METFORMIN [Concomitant]
     Active Substance: METFORMIN HYDROCHLORIDE
  4. THALITONE [Concomitant]
     Active Substance: CHLORTHALIDONE
  5. ATORVASTATIN [Concomitant]
     Active Substance: ATORVASTATIN
  6. POTASSIUM [Concomitant]
     Active Substance: POTASSIUM
  7. CLONIDINE [Concomitant]
     Active Substance: CLONIDINE
  8. OXYCODONE [Concomitant]
     Active Substance: OXYCODONE
  9. MORPHINE SULFATE [Concomitant]
     Active Substance: MORPHINE SULFATE
  10. TIZANIDINE [Concomitant]
     Active Substance: TIZANIDINE
  11. ZOFRAN [Concomitant]
     Active Substance: ONDANSETRON HYDROCHLORIDE
  12. DICYCLOMINE [Concomitant]
     Active Substance: DICYCLOMINE HYDROCHLORIDE
  13. ESZOPICLONE [Concomitant]
     Active Substance: ESZOPICLONE
  14. ASPIRIN [Concomitant]
     Active Substance: ASPIRIN
  15. VITAMIN D3 [Concomitant]
     Active Substance: CHOLECALCIFEROL
  16. FEOSOL MAGOXIDE [Concomitant]
  17. PROBIOTIC/PREBIOTIC [Concomitant]
  18. NEXIUM [Concomitant]
     Active Substance: ESOMEPRAZOLE MAGNESIUM
  19. GAS-X [Concomitant]
     Active Substance: DIMETHICONE
  20. MIRALAX STOOL SOFTNER [Concomitant]

REACTIONS (5)
  - Product commingling [None]
  - Dizziness [None]
  - Malaise [None]
  - Headache [None]
  - Vision blurred [None]

NARRATIVE: CASE EVENT DATE: 20220824
